FAERS Safety Report 5355987-X (Version None)
Quarter: 2007Q2

REPORT INFORMATION
  Report Type: 
  Country: None (occurrence: None)
  Receive Date: 20070613
  Receipt Date: 20070607
  Transmission Date: 20071010
  Serious: Yes (Hospitalization)
  Sender: FDA-Public Use
  Company Number: HQWYE362115JAN07

PATIENT
  Sex: Male
  Weight: 54 kg

DRUGS (6)
  1. TAZOCIN [Suspect]
     Indication: SHUNT INFECTION
     Route: 042
     Dates: start: 20061120, end: 20061208
  2. SEDES G [Concomitant]
     Dosage: UNKNOWN
     Route: 048
     Dates: start: 20061121
  3. EPOGEN [Concomitant]
     Dosage: 3000 IU DAILY
     Route: 041
  4. VOLTAREN [Concomitant]
     Dosage: 100MG DAILY AS NEEDED
     Dates: start: 20061120, end: 20061208
  5. NAFAMOSTAT MESILATE [Concomitant]
     Dosage: UNKNOWN
     Route: 042
  6. SOLU-MEDROL [Concomitant]
     Dosage: 125 MG DAILY
     Route: 041
     Dates: start: 20061120, end: 20061201

REACTIONS (13)
  - ABDOMINAL PAIN [None]
  - BLOOD PRESSURE INCREASED [None]
  - CHEST PAIN [None]
  - CHILLS [None]
  - CONVULSION [None]
  - DIARRHOEA [None]
  - DISCOMFORT [None]
  - DRUG INEFFECTIVE [None]
  - DYSPNOEA [None]
  - FAECES DISCOLOURED [None]
  - HEADACHE [None]
  - PAIN [None]
  - TREMOR [None]
